FAERS Safety Report 21611263 (Version 3)
Quarter: 2023Q1

REPORT INFORMATION
  Report Type: Spontaneous
  Country: US (occurrence: US)
  Receive Date: 20221117
  Receipt Date: 20230118
  Transmission Date: 20230418
  Serious: No
  Sender: FDA-Public Use
  Company Number: US-SA-SAC20221116000767

PATIENT
  Age: 15 Year
  Sex: Female
  Weight: 81.6 kg

DRUGS (6)
  1. DUPIXENT [Suspect]
     Active Substance: DUPILUMAB
     Indication: Dermatitis atopic
     Dosage: 600 MG, 1X
     Route: 058
     Dates: start: 20220721, end: 20220721
  2. DUPIXENT [Suspect]
     Active Substance: DUPILUMAB
     Dosage: 300 MG, QOW
     Route: 058
  3. TRIAMCINOLONE [Concomitant]
     Active Substance: TRIAMCINOLONE
     Dosage: UNK UNK, BID
     Dates: start: 20210422, end: 20220721
  4. EUCRISA [Concomitant]
     Active Substance: CRISABOROLE
     Indication: Impetigo
     Dosage: UNK UNK, PRN
     Dates: start: 20210422, end: 20220721
  5. EUCRISA [Concomitant]
     Active Substance: CRISABOROLE
     Dosage: UNK
     Dates: start: 20220721
  6. MUPIROCIN [Concomitant]
     Active Substance: MUPIROCIN
     Dosage: UNK UNK, BID
     Route: 061

REACTIONS (4)
  - Injection site pain [Unknown]
  - Injection site haemorrhage [Unknown]
  - Injection site reaction [Unknown]
  - Pharyngitis [Unknown]

NARRATIVE: CASE EVENT DATE: 20221101
